FAERS Safety Report 5787252-0 (Version None)
Quarter: 2008Q2

REPORT INFORMATION
  Report Type: 
  Country: None (occurrence: None)
  Receive Date: 20080620
  Receipt Date: 20080610
  Transmission Date: 20081010
  Serious: Yes (Hospitalization)
  Sender: FDA-Public Use
  Company Number: 2007BI016904

PATIENT
  Age: 44 Year
  Sex: Female
  Weight: 89.8122 kg

DRUGS (1)
  1. AVONEX [Suspect]
     Indication: MULTIPLE SCLEROSIS
     Dosage: 30 UG; QW; IM
     Route: 030
     Dates: start: 20060101

REACTIONS (5)
  - BREAST CANCER FEMALE [None]
  - CHILLS [None]
  - INFLUENZA LIKE ILLNESS [None]
  - PAIN [None]
  - PYREXIA [None]
